FAERS Safety Report 14908874 (Version 1)
Quarter: 2018Q2

REPORT INFORMATION
  Report Type: Spontaneous
  Country: DE (occurrence: DE)
  Receive Date: 20180517
  Receipt Date: 20180517
  Transmission Date: 20180711
  Serious: Yes (Death, Life-Threatening, Other)
  Sender: FDA-Public Use
  Company Number: DE-JNJFOC-20180431725

PATIENT
  Sex: Male
  Weight: 79 kg

DRUGS (1)
  1. IBRUTINIB [Suspect]
     Active Substance: IBRUTINIB
     Indication: CHRONIC LYMPHOCYTIC LEUKAEMIA
     Route: 048
     Dates: start: 201802, end: 201803

REACTIONS (3)
  - Gastrointestinal stromal tumour [Not Recovered/Not Resolved]
  - Hepatic neoplasm [Fatal]
  - Hepatic failure [Fatal]
